FAERS Safety Report 19313420 (Version 1)
Quarter: 2021Q2

REPORT INFORMATION
  Report Type: Spontaneous
  Country: US (occurrence: US)
  Receive Date: 20210527
  Receipt Date: 20210527
  Transmission Date: 20210717
  Serious: No
  Sender: FDA-Public Use
  Company Number: US-AMGEN-USASP2021078922

PATIENT
  Age: 73 Year
  Sex: Female
  Weight: 87.98 kg

DRUGS (2)
  1. NEULASTA [Suspect]
     Active Substance: PEGFILGRASTIM
     Indication: NEUTROPENIA
     Dosage: UNK
     Route: 065
  2. NEULASTA [Suspect]
     Active Substance: PEGFILGRASTIM
     Dosage: UNK
     Route: 065

REACTIONS (4)
  - Unintentional medical device removal [Unknown]
  - Poor quality sleep [Unknown]
  - Wrong technique in product usage process [Unknown]
  - Device adhesion issue [Unknown]

NARRATIVE: CASE EVENT DATE: 202105
